FAERS Safety Report 6991417-X (Version None)
Quarter: 2010Q3

REPORT INFORMATION
  Report Type: 
  Country: None (occurrence: None)
  Receive Date: 20100916
  Receipt Date: 20090821
  Transmission Date: 20110219
  Serious: No
  Sender: FDA-Public Use
  Company Number: US-WYE-H10694109

PATIENT
  Sex: Female

DRUGS (2)
  1. PRISTIQ [Suspect]
     Indication: DEPRESSION
     Route: 048
     Dates: start: 20090601, end: 20090101
  2. PRISTIQ [Suspect]
     Route: 048
     Dates: start: 20090101

REACTIONS (2)
  - ANXIETY [None]
  - NIGHTMARE [None]
